FAERS Safety Report 4537282-1 (Version None)
Quarter: 2004Q4

REPORT INFORMATION
  Report Type: 
  Country: None (occurrence: None)
  Receive Date: 20041221
  Receipt Date: 20041018
  Transmission Date: 20050328
  Serious: Yes (Hospitalization)
  Sender: FDA-Public Use
  Company Number: 210001

PATIENT
  Age: 39 Year
  Sex: Male

DRUGS (3)
  1. AVASTIN [Suspect]
     Indication: GASTRIC CANCER
     Dosage: 15 MG/KG, Q3W, INTRAVENOUS
     Route: 042
     Dates: start: 20040819
  2. IRINOTECAN HCL [Suspect]
     Indication: GASTRIC CANCER
     Dosage: 65 MG/M2, 1/ WEEK, INTRAVENOUS
     Route: 042
     Dates: start: 20040819
  3. CISPLATIN [Suspect]
     Indication: GASTRIC CANCER
     Dosage: 30 MG/M2, 1/WEEK, INTRAVENOUS
     Route: 042
     Dates: start: 20040819

REACTIONS (1)
  - GASTRIC PERFORATION [None]
